FAERS Safety Report 16557766 (Version 4)
Quarter: 2019Q3

REPORT INFORMATION
  Report Type: Report from Study
  Country: None (occurrence: CA)
  Receive Date: 20190711
  Receipt Date: 20190821
  Transmission Date: 20191004
  Serious: Yes (Hospitalization, Other)
  Sender: FDA-Public Use
  Company Number: CA-ABBVIE-19K-028-2848695-00

PATIENT
  Sex: Male

DRUGS (1)
  1. HUMIRA [Suspect]
     Active Substance: ADALIMUMAB
     Indication: COLITIS ULCERATIVE
     Route: 058
     Dates: start: 20190615, end: 201907

REACTIONS (3)
  - Anal abscess [Unknown]
  - Perineal injury [Recovering/Resolving]
  - Anorectal swelling [Not Recovered/Not Resolved]

NARRATIVE: CASE EVENT DATE: 2019
